FAERS Safety Report 8287271-9 (Version None)
Quarter: 2012Q2

REPORT INFORMATION
  Report Type: 
  Country: None (occurrence: None)
  Receive Date: 20120416
  Receipt Date: 20120416
  Transmission Date: 20120825
  Serious: Yes (Other)
  Sender: FDA-Public Use
  Company Number: None

PATIENT
  Sex: Female
  Weight: 83.007 kg

DRUGS (1)
  1. PROTONIX [Suspect]
     Indication: PEPTIC ULCER
     Dosage: 40 MG
     Route: 048

REACTIONS (1)
  - RASH [None]
